FAERS Safety Report 18956641 (Version 1)
Quarter: 2021Q1

REPORT INFORMATION
  Report Type: Report from Study
  Country: None (occurrence: DE)
  Receive Date: 20210302
  Receipt Date: 20210302
  Transmission Date: 20210420
  Serious: Yes (Hospitalization)
  Sender: FDA-Public Use
  Company Number: DE-ABBVIE-21K-062-3793304-00

PATIENT
  Sex: Female

DRUGS (1)
  1. HUMIRA [Suspect]
     Active Substance: ADALIMUMAB
     Indication: CROHN^S DISEASE
     Route: 058
     Dates: start: 2017, end: 201909

REACTIONS (7)
  - Sinusitis [Unknown]
  - Cerebral thrombosis [Recovering/Resolving]
  - Rhinorrhoea [Unknown]
  - Purulent discharge [Unknown]
  - Nasopharyngitis [Unknown]
  - Meningitis [Recovering/Resolving]
  - Abscess [Unknown]

NARRATIVE: CASE EVENT DATE: 2019
